FAERS Safety Report 6255786-0 (Version None)
Quarter: 2009Q3

REPORT INFORMATION
  Report Type: 
  Country: None (occurrence: None)
  Receive Date: 20090703
  Receipt Date: 20090624
  Transmission Date: 20100115
  Serious: Yes (Other)
  Sender: FDA-Public Use
  Company Number: US-JNJCH-2009017825

PATIENT
  Age: 16 Year
  Sex: Female

DRUGS (6)
  1. ASPIRIN [Suspect]
     Indication: DRUG USE FOR UNKNOWN INDICATION
     Dosage: TEXT:UNSPECIFIED
     Route: 065
  2. PREDNISONE [Concomitant]
     Indication: ASTHMA
     Dosage: TEXT:10 MG TO 40 MG EVERY OTHER DAY
     Route: 065
  3. AMINOPHYLLINE [Concomitant]
     Indication: ASTHMA
     Dosage: TEXT:UNKNOWN
     Route: 054
  4. ISOPROTERENOL HCL [Concomitant]
     Indication: ASTHMA
     Dosage: TEXT:UNKNOWN
     Route: 055
  5. CORTICOSTEROIDS [Concomitant]
     Indication: ASTHMA
     Dosage: TEXT:UNKNOWN
     Route: 065
  6. DRUG, UNSPECIFIED [Concomitant]
     Indication: ASTHMA
     Dosage: TEXT:UNKNOWN
     Route: 065

REACTIONS (5)
  - ASTHMA [None]
  - BLOOD IMMUNOGLOBULIN E INCREASED [None]
  - EOSINOPHIL COUNT INCREASED [None]
  - OEDEMA PERIPHERAL [None]
  - SWELLING FACE [None]
